FAERS Safety Report 9407150 (Version 1)
Quarter: 2013Q3

REPORT INFORMATION
  Report Type: Report from Study
  Country: LB (occurrence: LB)
  Receive Date: 20130718
  Receipt Date: 20130718
  Transmission Date: 20140515
  Serious: Yes (Hospitalization, Disabling)
  Sender: FDA-Public Use
  Company Number: LB-SANOFI-AVENTIS-2013SA070390

PATIENT
  Age: 65 Year
  Sex: Female

DRUGS (7)
  1. LANTUS SOLOSTAR [Suspect]
     Indication: DIABETES MELLITUS
     Dosage: DOSE:16 UNIT(S)
     Route: 058
     Dates: start: 2012
  2. SOLOSTAR [Suspect]
     Indication: DEVICE THERAPY
     Dates: start: 2012
  3. GALVUSMET [Concomitant]
     Indication: DIABETES MELLITUS
     Route: 048
  4. TELMISARTAN [Concomitant]
     Route: 048
  5. PLENDIL [Concomitant]
     Route: 048
  6. NEFAZAN [Concomitant]
     Route: 048
  7. ASPICOT [Concomitant]
     Route: 048

REACTIONS (5)
  - Cardiac operation [Recovering/Resolving]
  - Cerebrovascular accident [Recovering/Resolving]
  - Dysphonia [Recovering/Resolving]
  - Hyporeflexia [Recovering/Resolving]
  - Ill-defined disorder [Recovering/Resolving]
